FAERS Safety Report 24863649 (Version 3)
Quarter: 2025Q1

REPORT INFORMATION
  Report Type: Spontaneous
  Country: ES (occurrence: ES)
  Receive Date: 20250120
  Receipt Date: 20250206
  Transmission Date: 20250409
  Serious: Yes (Hospitalization, Other)
  Sender: ELI LILLY AND COMPANY
  Company Number: ES-ELI_LILLY_AND_COMPANY-ES202501007518

PATIENT
  Sex: Female

DRUGS (1)
  1. ABEMACICLIB [Suspect]
     Active Substance: ABEMACICLIB
     Indication: Product used for unknown indication
     Route: 065

REACTIONS (8)
  - Dysphagia [Unknown]
  - Dysphonia [Unknown]
  - Oesophagitis [Unknown]
  - Pleural effusion [Unknown]
  - Malignant neoplasm progression [Unknown]
  - Swelling [Unknown]
  - Diarrhoea [Unknown]
  - Fatigue [Unknown]
